FAERS Safety Report 18279345 (Version 1)
Quarter: 2020Q3

REPORT INFORMATION
  Report Type: Spontaneous
  Country: US (occurrence: US)
  Receive Date: 20200917
  Receipt Date: 20200917
  Transmission Date: 20201103
  Serious: No
  Sender: FDA-Public Use
  Company Number: US-TEVA-2020-US-1828017

PATIENT
  Age: 81 Year
  Sex: Male

DRUGS (2)
  1. ALPRAZOLAM TEVA [Suspect]
     Active Substance: ALPRAZOLAM
     Indication: INSOMNIA
     Dosage: DOSE: HE BROKE INTO TWO AND TOOK ONE HALF
     Route: 065
     Dates: start: 2000
  2. ALPRAZOLAM TEVA [Suspect]
     Active Substance: ALPRAZOLAM
     Dosage: .25 MILLIGRAM DAILY;
     Route: 065
     Dates: start: 20200906

REACTIONS (2)
  - Product quality issue [Unknown]
  - Drug ineffective [Unknown]

NARRATIVE: CASE EVENT DATE: 20200906
